FAERS Safety Report 13136026 (Version 2)
Quarter: 2017Q2

REPORT INFORMATION
  Report Type: Spontaneous
  Country: BR (occurrence: BR)
  Receive Date: 20170120
  Receipt Date: 20170524
  Transmission Date: 20170830
  Serious: Yes (Hospitalization, Other)
  Sender: FDA-Public Use
  Company Number: BR-ABBVIE-17P-020-1845629-00

PATIENT
  Sex: Female

DRUGS (7)
  1. DEPAKENE [Suspect]
     Active Substance: VALPROIC ACID
     Indication: MIGRAINE
     Dosage: BETWEEN 2014 AND 2015, AT NIGHT 250 MG
     Route: 048
     Dates: start: 2014, end: 2015
  2. DROSPIRENONE W/ETHINYLESTRADIOL [Concomitant]
     Active Substance: DROSPIRENONE\ETHINYL ESTRADIOL
     Indication: CONTRACEPTION
     Dates: start: 2014, end: 20160527
  3. DEPAKOTE ER [Suspect]
     Active Substance: DIVALPROEX SODIUM
     Indication: PRODUCT USED FOR UNKNOWN INDICATION
     Route: 065
  4. DEPAKOTE [Suspect]
     Active Substance: DIVALPROEX SODIUM
     Indication: EPILEPSY
     Route: 048
  5. DEPAKENE [Suspect]
     Active Substance: VALPROIC ACID
     Indication: EPILEPSY
     Route: 048
  6. DIANE (CYPROTERONE ACETATE\ETHINYL ESTRADIOL) [Concomitant]
     Active Substance: CYPROTERONE ACETATE\ETHINYL ESTRADIOL
     Indication: CONTRACEPTION
     Dates: end: 2014
  7. DEPAKOTE [Suspect]
     Active Substance: DIVALPROEX SODIUM
     Indication: MIGRAINE
     Dosage: 250 MG AT NIGHT
     Route: 048
     Dates: start: 2008

REACTIONS (12)
  - Abortion [Unknown]
  - Product use complaint [Unknown]
  - Maternal exposure during pregnancy [Unknown]
  - Hyperhidrosis [Recovered/Resolved]
  - Therapy cessation [Unknown]
  - Foetal death [Unknown]
  - Heart rate increased [Recovered/Resolved]
  - Burning sensation [Unknown]
  - Muscle twitching [Not Recovered/Not Resolved]
  - Dissociation [Not Recovered/Not Resolved]
  - Abdominal pain upper [Unknown]
  - Blood pressure decreased [Recovered/Resolved]

NARRATIVE: CASE EVENT DATE: 2012
